FAERS Safety Report 12641631 (Version 1)
Quarter: 2016Q3

REPORT INFORMATION
  Report Type: Spontaneous
  Country: NL (occurrence: NL)
  Receive Date: 20160810
  Receipt Date: 20160810
  Transmission Date: 20161109
  Serious: Yes (Hospitalization)
  Sender: FDA-Public Use
  Company Number: NL-009507513-1608NLD001743

PATIENT
  Age: 53 Year
  Sex: Female
  Weight: 85 kg

DRUGS (2)
  1. CALCICHEW D3 FORTE [Concomitant]
     Active Substance: CALCIUM\CHOLECALCIFEROL
     Dosage: 1 DF, QD, 1 TIME A DAY 1 PIECE
     Route: 048
     Dates: start: 201603
  2. SIMVASTATIN. [Suspect]
     Active Substance: SIMVASTATIN
     Indication: HYPERCHOLESTEROLAEMIA
     Dosage: 40 MG, QD, 1 TIME A DAY 1 PIECE
     Route: 048
     Dates: start: 201603, end: 201604

REACTIONS (2)
  - Hyperventilation [Recovering/Resolving]
  - Chest pain [Recovering/Resolving]

NARRATIVE: CASE EVENT DATE: 201604
